FAERS Safety Report 11453602 (Version 1)
Quarter: 2015Q3

REPORT INFORMATION
  Report Type: Spontaneous
  Country: US (occurrence: US)
  Receive Date: 20150831
  Receipt Date: 20150831
  Transmission Date: 20151125
  Serious: No
  Sender: FDA-Public Use
  Company Number: US-ELI_LILLY_AND_COMPANY-US200912004595

PATIENT
  Age: 30 Year
  Sex: Female

DRUGS (1)
  1. CYMBALTA [Suspect]
     Active Substance: DULOXETINE HYDROCHLORIDE
     Indication: MAJOR DEPRESSION
     Route: 048

REACTIONS (11)
  - Irritability [Unknown]
  - Anxiety [Unknown]
  - Burning sensation [Unknown]
  - Nervousness [Unknown]
  - Drug ineffective [Unknown]
  - Activation syndrome [Unknown]
  - Blood pressure increased [Unknown]
  - Agitation [Unknown]
  - Fatigue [Unknown]
  - Hyperhidrosis [Unknown]
  - Paraesthesia [Unknown]
